FAERS Safety Report 10646987 (Version 1)
Quarter: 2014Q4

REPORT INFORMATION
  Report Type: Spontaneous
  Country: BY (occurrence: BY)
  Receive Date: 20141211
  Receipt Date: 20141211
  Transmission Date: 20150529
  Serious: Yes (Other)
  Sender: FDA-Public Use
  Company Number: BAUSCH-BL-2014-010055

PATIENT
  Age: 3 Year
  Sex: Female

DRUGS (1)
  1. CARTEOL [Suspect]
     Active Substance: CARTEOLOL
     Indication: ACCIDENTAL EXPOSURE TO PRODUCT BY CHILD

REACTIONS (2)
  - Asthmatic crisis [Recovered/Resolved]
  - Accidental exposure to product by child [Recovered/Resolved]
